FAERS Safety Report 9580077 (Version 1)
Quarter: 2013Q3

REPORT INFORMATION
  Report Type: Spontaneous
  Country: US (occurrence: None)
  Receive Date: 20130916
  Receipt Date: 20130916
  Transmission Date: 20140515
  Serious: Yes (Hospitalization)
  Sender: FDA-Public Use
  Company Number: JPI-P-025302

PATIENT
  Age: 32 Year
  Sex: Male

DRUGS (2)
  1. XYREM [Suspect]
     Indication: NARCOLEPSY
     Dosage: 9 GM (4.5 GM, 2 IN 1 D), OAL
     Route: 048
     Dates: start: 20100318
  2. ANTI-DEPRESSANT [Concomitant]

REACTIONS (4)
  - Suicide attempt [None]
  - Unresponsive to stimuli [None]
  - Areflexia [None]
  - Incorrect dose administered [None]
